FAERS Safety Report 13311787 (Version 1)
Quarter: 2017Q1

REPORT INFORMATION
  Report Type: Spontaneous
  Country: US (occurrence: US)
  Receive Date: 20170308
  Receipt Date: 20170308
  Transmission Date: 20170428
  Serious: Yes (Hospitalization)
  Sender: FDA-Public Use
  Company Number: None

PATIENT
  Sex: Female

DRUGS (17)
  1. FLUOXETINE [Concomitant]
     Active Substance: FLUOXETINE HYDROCHLORIDE
  2. CARB/LEVO [Concomitant]
     Active Substance: CARBIDOPA\LEVODOPA
  3. CIPROFLOXACN [Concomitant]
     Active Substance: CIPROFLOXACIN
  4. POT CHLOR [Concomitant]
  5. TEMAZEPAM. [Concomitant]
     Active Substance: TEMAZEPAM
  6. NUPLAZID [Suspect]
     Active Substance: PIMAVANSERIN TARTRATE
     Indication: PSYCHOTIC DISORDER
     Route: 048
  7. BENZONATATE. [Concomitant]
     Active Substance: BENZONATATE
  8. ONDANSETRON [Concomitant]
     Active Substance: ONDANSETRON
  9. AZITHROMYCIN ANHYDROUS. [Concomitant]
     Active Substance: AZITHROMYCIN ANHYDROUS
  10. DOXYCYCL [Concomitant]
  11. FLECAINIDE [Concomitant]
     Active Substance: FLECAINIDE
  12. LEVETIRACETA [Concomitant]
  13. OSELTEAMIVIR [Concomitant]
  14. NUPLAZID [Suspect]
     Active Substance: PIMAVANSERIN TARTRATE
     Indication: PARKINSON^S DISEASE
     Route: 048
  15. ALPRAZOLAM. [Concomitant]
     Active Substance: ALPRAZOLAM
  16. PROCHLORPER [Concomitant]
  17. PORMETH/COD SYP [Concomitant]

REACTIONS (1)
  - Shoulder arthroplasty [None]
